FAERS Safety Report 9088596 (Version 1)
Quarter: 2013Q1

REPORT INFORMATION
  Report Type: Spontaneous
  Country: US (occurrence: US)
  Receive Date: 20130201
  Receipt Date: 20130201
  Transmission Date: 20140127
  Serious: No
  Sender: FDA-Public Use
  Company Number: US-TEVA-382825USA

PATIENT
  Age: 19 Year
  Sex: Female
  Weight: 81.72 kg

DRUGS (2)
  1. PLAN B ONE-STEP [Suspect]
     Indication: POST COITAL CONTRACEPTION
     Dosage: 1.5 MILLIGRAM DAILY;
     Route: 048
     Dates: start: 20130120, end: 20130120
  2. MOTRIN [Concomitant]
     Indication: HEADACHE
     Dates: start: 20130115, end: 20130123

REACTIONS (3)
  - Dysuria [Not Recovered/Not Resolved]
  - Erythema [Not Recovered/Not Resolved]
  - Headache [Recovered/Resolved]
